FAERS Safety Report 19645534 (Version 1)
Quarter: 2021Q3

REPORT INFORMATION
  Report Type: Spontaneous
  Country: US (occurrence: US)
  Receive Date: 20210730
  Receipt Date: 20210730
  Transmission Date: 20211014
  Serious: Yes (Disabling)
  Sender: FDA-Public Use
  Company Number: None

PATIENT
  Age: 40 Year
  Sex: Female
  Weight: 58.5 kg

DRUGS (3)
  1. HUMIRA [Suspect]
     Active Substance: ADALIMUMAB
     Indication: CROHN^S DISEASE
     Dosage: ?QUANTITY:1 INJECTION(S);?OTHER FREQUENCY:EVERY OTHER WEEK;?
     Route: 058
  2. STELARA [Concomitant]
     Active Substance: USTEKINUMAB
  3. LEXAPRO [Concomitant]
     Active Substance: ESCITALOPRAM OXALATE

REACTIONS (2)
  - Cutaneous vasculitis [None]
  - Joint swelling [None]

NARRATIVE: CASE EVENT DATE: 20160801
